FAERS Safety Report 7238787-5 (Version None)
Quarter: 2011Q1

REPORT INFORMATION
  Report Type: 
  Country: None (occurrence: None)
  Receive Date: 20110121
  Receipt Date: 20110117
  Transmission Date: 20110831
  Serious: Yes (Other)
  Sender: FDA-Public Use
  Company Number: GB-PFIZER INC-2010085707

PATIENT
  Age: 20 Year
  Sex: Female
  Weight: 45 kg

DRUGS (3)
  1. DEPO-PROVERA [Suspect]
     Indication: CONTRACEPTION
     Dosage: 150 MG, UNK
     Route: 030
     Dates: start: 20091020
  2. DEPO-PROVERA [Suspect]
     Dosage: UNK
     Dates: start: 20100308
  3. DEPO-PROVERA [Suspect]
     Dosage: UNK
     Dates: start: 20100604

REACTIONS (4)
  - INAPPROPRIATE SCHEDULE OF DRUG ADMINISTRATION [None]
  - VOMITING [None]
  - UNINTENDED PREGNANCY [None]
  - AMENORRHOEA [None]
